FAERS Safety Report 9096124 (Version 1)
Quarter: 2013Q1

REPORT INFORMATION
  Report Type: Spontaneous
  Country: US (occurrence: US)
  Receive Date: 20130207
  Receipt Date: 20130207
  Transmission Date: 20140127
  Serious: No
  Sender: FDA-Public Use
  Company Number: US-BAYER-2013-004176

PATIENT
  Age: 73 Year
  Sex: Female

DRUGS (1)
  1. ADALAT CC [Suspect]
     Indication: HYPERTENSION
     Dosage: 30 MG, QD
     Route: 048

REACTIONS (2)
  - Feeling hot [None]
  - Headache [None]
